FAERS Safety Report 15826102 (Version 1)
Quarter: 2019Q1

REPORT INFORMATION
  Report Type: Spontaneous
  Country: US (occurrence: US)
  Receive Date: 20190115
  Receipt Date: 20190115
  Transmission Date: 20190417
  Serious: No
  Sender: FDA-Public Use
  Company Number: US-REGENERON PHARMACEUTICALS, INC.-2017-30360

PATIENT

DRUGS (2)
  1. EYLEA [Suspect]
     Active Substance: AFLIBERCEPT
     Indication: MACULAR DEGENERATION
     Dosage: 1 VIAL PER EYE, MONTHLY, RIGHT EYE
     Route: 031
     Dates: start: 20160717
  2. EYLEA [Suspect]
     Active Substance: AFLIBERCEPT
     Dosage: 1 VIAL PER EYE, MONTHLY, BOTH EYES
     Route: 031
     Dates: start: 201611, end: 20161104

REACTIONS (1)
  - Drug resistance [Unknown]

NARRATIVE: CASE EVENT DATE: 2017
